FAERS Safety Report 6608650-9 (Version None)
Quarter: 2010Q1

REPORT INFORMATION
  Report Type: 
  Country: None (occurrence: None)
  Receive Date: 20100222
  Receipt Date: 20100210
  Transmission Date: 20100710
  Serious: Yes (Hospitalization)
  Sender: FDA-Public Use
  Company Number: DAV-AE-MTX-10-003

PATIENT
  Age: 33 Year
  Sex: Female

DRUGS (8)
  1. METHOTREXATE [Suspect]
     Dates: start: 20080601
  2. MIRALAX [Concomitant]
  3. PENTASA [Concomitant]
  4. PREDNISONE TAB [Concomitant]
  5. AZATHIOPRINE [Concomitant]
  6. MERCAPTOPURINE [Concomitant]
  7. INFLIXIMAB [Concomitant]
  8. ADALIMUMAB [Concomitant]

REACTIONS (3)
  - CLOSTRIDIAL INFECTION [None]
  - DIVERTICULUM [None]
  - INFLAMMATORY BOWEL DISEASE [None]
